FAERS Safety Report 5257192-4 (Version None)
Quarter: 2007Q1

REPORT INFORMATION
  Report Type: 
  Country: None (occurrence: None)
  Receive Date: 20070307
  Receipt Date: 20070305
  Transmission Date: 20070707
  Serious: Yes (Other)
  Sender: FDA-Public Use
  Company Number: 2007-002007

PATIENT
  Age: 43 Year
  Sex: Female
  Weight: 67.6 kg

DRUGS (9)
  1. FLOLAN [Suspect]
     Dosage: 20NGKM UNKNOWN
     Route: 042
     Dates: start: 20050412
  2. SINGULAIR [Concomitant]
     Dosage: 10MG PER DAY
     Route: 048
  3. AMBIEN [Concomitant]
     Dosage: 5MG AT NIGHT
     Route: 048
  4. INTAL [Concomitant]
     Dosage: 2PUFF SIX TIMES PER DAY
     Route: 055
  5. COLACE [Concomitant]
     Dosage: 100MG TWICE PER DAY
     Route: 048
  6. OMEPRAZOLE [Concomitant]
     Dosage: 20MG PER DAY
     Route: 048
  7. SILDENAFIL CITRATE [Concomitant]
     Dosage: 20MG THREE TIMES PER DAY
     Route: 048
  8. COUMADIN [Concomitant]
     Dosage: 5MG PER DAY
     Route: 048
  9. TRUVADA [Concomitant]
     Dosage: 300MG PER DAY
     Route: 048

REACTIONS (2)
  - CATHETER RELATED COMPLICATION [None]
  - PHARMACEUTICAL PRODUCT COMPLAINT [None]
